FAERS Safety Report 15697852 (Version 3)
Quarter: 2019Q4

REPORT INFORMATION
  Report Type: Spontaneous
  Country: US (occurrence: US)
  Receive Date: 20181207
  Receipt Date: 20191216
  Transmission Date: 20200122
  Serious: No
  Sender: FDA-Public Use
  Company Number: US-PFIZER INC-2018499518

PATIENT
  Age: 54 Year
  Sex: Male
  Weight: 129.73 kg

DRUGS (3)
  1. VIAGRA [Interacting]
     Active Substance: SILDENAFIL CITRATE
     Dosage: 30 MG, UNK
  2. VIAGRA [Suspect]
     Active Substance: SILDENAFIL CITRATE
     Indication: ERECTILE DYSFUNCTION
     Dosage: 100 MG, AS NEEDED
     Route: 048
  3. VIAGRA [Interacting]
     Active Substance: SILDENAFIL CITRATE
     Dosage: 200 MG, UNK (TAKES 2 PILLS INSTEAD OF ONE)
     Dates: start: 2018

REACTIONS (4)
  - Intentional product use issue [Unknown]
  - Drug interaction [Unknown]
  - Drug ineffective [Unknown]
  - Wrong strength [Unknown]

NARRATIVE: CASE EVENT DATE: 201806
